FAERS Safety Report 8276726-9 (Version None)
Quarter: 2012Q2

REPORT INFORMATION
  Report Type: 
  Country: None (occurrence: None)
  Receive Date: 20120412
  Receipt Date: 20120412
  Transmission Date: 20120825
  Serious: Yes (Hospitalization)
  Sender: FDA-Public Use
  Company Number: None

PATIENT
  Age: 35 Year
  Sex: Female

DRUGS (1)
  1. OMEPRAZOLE [Suspect]
     Indication: GASTROOESOPHAGEAL REFLUX DISEASE
     Dosage: 40 MG
     Route: 048
     Dates: start: 20110831, end: 20120212

REACTIONS (6)
  - HYPOTENSION [None]
  - PSEUDOMEMBRANOUS COLITIS [None]
  - APPARENT LIFE THREATENING EVENT [None]
  - CLOSTRIDIUM DIFFICILE COLITIS [None]
  - NO THERAPEUTIC RESPONSE [None]
  - ELECTROLYTE DEPLETION [None]
